FAERS Safety Report 7693318-0 (Version None)
Quarter: 2011Q3

REPORT INFORMATION
  Report Type: 
  Country: None (occurrence: None)
  Receive Date: 20110819
  Receipt Date: 20110812
  Transmission Date: 20111222
  Serious: Yes (Other)
  Sender: FDA-Public Use
  Company Number: PHHY2011JP73366

PATIENT
  Sex: Female

DRUGS (2)
  1. DOCETAXEL [Concomitant]
  2. ZOMETA [Suspect]
     Indication: METASTASES TO BONE

REACTIONS (2)
  - VISION BLURRED [None]
  - OPTIC ISCHAEMIC NEUROPATHY [None]
